FAERS Safety Report 6158465-3 (Version None)
Quarter: 2009Q2

REPORT INFORMATION
  Report Type: 
  Country: None (occurrence: None)
  Receive Date: 20090408
  Receipt Date: 20090121
  Transmission Date: 20091009
  Serious: Yes (Death)
  Sender: FDA-Public Use
  Company Number: BMS-LI-2009-0034-V001

PATIENT
  Age: 50 Year
  Sex: Male

DRUGS (5)
  1. TRAZODONE HYDROCHLORIDE [Suspect]
  2. ARIPIPRAZOLE [Suspect]
  3. CLONAZEPAM [Suspect]
  4. BUSPIRONE HCL [Suspect]
  5. LAMOTRIGINE [Suspect]

REACTIONS (1)
  - COMPLETED SUICIDE [None]
